FAERS Safety Report 4743466-X (Version None)
Quarter: 2005Q3

REPORT INFORMATION
  Report Type: 
  Country: None (occurrence: None)
  Receive Date: 20050809
  Receipt Date: 20050728
  Transmission Date: 20060218
  Serious: Yes (Hospitalization, Other)
  Sender: FDA-Public Use
  Company Number: HQWYE852125JAN05

PATIENT
  Age: 60 Year
  Sex: Male

DRUGS (4)
  1. CORDARONE [Suspect]
     Indication: NODAL ARRHYTHMIA
     Dosage: 200 MG 1X PER 1 DAY, ORAL
     Route: 048
     Dates: start: 20041220, end: 20050110
  2. ENALAPRIL MALEATE [Concomitant]
  3. TENORMIN [Concomitant]
  4. PYOSTACINE (PRISTINAMYCIN) [Concomitant]

REACTIONS (2)
  - DERMATITIS EXFOLIATIVE [None]
  - EYELID OEDEMA [None]
